FAERS Safety Report 16690598 (Version 2)
Quarter: 2019Q3

REPORT INFORMATION
  Report Type: Spontaneous
  Country: US (occurrence: US)
  Receive Date: 20190810
  Receipt Date: 20190911
  Transmission Date: 20191004
  Serious: No
  Sender: FDA-Public Use
  Company Number: US-009507513-1908USA004023

PATIENT
  Age: 28 Year
  Sex: Female

DRUGS (1)
  1. NEXPLANON [Suspect]
     Active Substance: ETONOGESTREL
     Indication: CONTRACEPTION
     Dosage: 68 MG, FREQUENCY REPORTED AS ^DAILY^
     Route: 059
     Dates: start: 20190510, end: 20190717

REACTIONS (4)
  - Inappropriate schedule of product administration [Unknown]
  - Vaginal haemorrhage [Unknown]
  - Adverse event [Unknown]
  - Application site discomfort [Unknown]

NARRATIVE: CASE EVENT DATE: 2019
